FAERS Safety Report 17296298 (Version 3)
Quarter: 2021Q1

REPORT INFORMATION
  Report Type: Spontaneous
  Country: US (occurrence: US)
  Receive Date: 20200122
  Receipt Date: 20210309
  Transmission Date: 20210419
  Serious: No
  Sender: FDA-Public Use
  Company Number: US-GLAXOSMITHKLINE-US2020009776

PATIENT
  Age: 53 Year
  Sex: Female

DRUGS (1)
  1. BENLYSTA [Suspect]
     Active Substance: BELIMUMAB
     Indication: PRODUCT USED FOR UNKNOWN INDICATION
     Dosage: UNK
     Route: 058
     Dates: start: 20200117

REACTIONS (10)
  - Insomnia [Unknown]
  - Productive cough [Unknown]
  - Device use issue [Unknown]
  - Product dose omission issue [Unknown]
  - Night sweats [Unknown]
  - Mood swings [Unknown]
  - Wrong technique in device usage process [Unknown]
  - Cough [Unknown]
  - Panic attack [Unknown]
  - Anxiety [Unknown]

NARRATIVE: CASE EVENT DATE: 20200117
